FAERS Safety Report 23327172 (Version 1)
Quarter: 2023Q4

REPORT INFORMATION
  Report Type: Spontaneous
  Country: US (occurrence: None)
  Receive Date: 20231221
  Receipt Date: 20231221
  Transmission Date: 20240109
  Serious: Yes (Other)
  Sender: FDA-Public Use
  Company Number: None

PATIENT
  Sex: Female

DRUGS (17)
  1. LENALIDOMIDE [Suspect]
     Active Substance: LENALIDOMIDE
     Indication: Plasma cell myeloma
     Route: 048
     Dates: start: 20220726
  2. ASPIRIN [Concomitant]
  3. ATORVASTATIN [Concomitant]
  4. BENEFIBER POW [Concomitant]
  5. CALCIUM [Concomitant]
  6. DICLOFENAC [Concomitant]
  7. ELIQUIS TAB [Concomitant]
  8. FLUOXETINE CAP [Concomitant]
  9. IBUPROFEN [Concomitant]
     Active Substance: IBUPROFEN
  10. KLOR-CON [Concomitant]
     Active Substance: POTASSIUM CHLORIDE
  11. MAGNESIUM TAB [Concomitant]
  12. METOPROL TAR [Concomitant]
  13. NABUMETONE TAB [Concomitant]
  14. OMEPRAZOLE CAP [Concomitant]
  15. SORINE TAB [Concomitant]
  16. TYLENOL [Concomitant]
  17. ZOMETA INJ [Concomitant]

REACTIONS (2)
  - COVID-19 [None]
  - Lung neoplasm malignant [None]
